FAERS Safety Report 20027247 (Version 1)
Quarter: 2021Q4

REPORT INFORMATION
  Report Type: Report from Study
  Country: BR (occurrence: BR)
  Receive Date: 20211103
  Receipt Date: 20211103
  Transmission Date: 20220303
  Serious: Yes (Death, Hospitalization)
  Sender: FDA-Public Use
  Company Number: BR-JNJFOC-20211057470

PATIENT
  Age: 71 Year
  Sex: Male
  Weight: 63 kg

DRUGS (1)
  1. REMICADE [Suspect]
     Active Substance: INFLIXIMAB
     Indication: Crohn^s disease
     Route: 042

REACTIONS (9)
  - Death [Fatal]
  - Sepsis [Unknown]
  - Lymphoma [Unknown]
  - Nosocomial infection [Unknown]
  - Multiple organ dysfunction syndrome [Unknown]
  - COVID-19 [Unknown]
  - Renal disorder [Unknown]
  - Off label use [Unknown]
  - Incorrect dose administered [Unknown]
